FAERS Safety Report 9332349 (Version 1)
Quarter: 2013Q2

REPORT INFORMATION
  Report Type: Report from Study
  Country: CA (occurrence: CA)
  Receive Date: 20130606
  Receipt Date: 20130606
  Transmission Date: 20140414
  Serious: Yes (Death, Other)
  Sender: FDA-Public Use
  Company Number: CA-ROCHE-1205863

PATIENT
  Age: 51 Year
  Sex: Male
  Weight: 102 kg

DRUGS (9)
  1. AVASTIN [Suspect]
     Indication: GLIOBLASTOMA
     Route: 042
     Dates: start: 20130307, end: 20130501
  2. METFORMIN [Concomitant]
  3. GLYBURIDE [Concomitant]
  4. CLOBAZAM [Concomitant]
  5. LEVETIRACETAM [Concomitant]
  6. DOCUSATE SODIUM [Concomitant]
  7. PANTOPRAZOLE [Concomitant]
  8. INSULIN [Concomitant]
  9. DECADRON [Concomitant]

REACTIONS (9)
  - Death [Fatal]
  - Hypertension [Unknown]
  - Urinary tract infection [Not Recovered/Not Resolved]
  - Weight decreased [Unknown]
  - Neutrophil count increased [Unknown]
  - Blood glucose increased [Unknown]
  - Mean cell haemoglobin increased [Unknown]
  - Dyspnoea exertional [Not Recovered/Not Resolved]
  - Cough [Not Recovered/Not Resolved]
